FAERS Safety Report 6305332-8 (Version None)
Quarter: 2009Q3

REPORT INFORMATION
  Report Type: 
  Country: None (occurrence: None)
  Receive Date: 20090811
  Receipt Date: 20090806
  Transmission Date: 20100115
  Serious: Yes (Other)
  Sender: FDA-Public Use
  Company Number: US-ABBOTT-09P-163-0589736-00

PATIENT
  Sex: Male

DRUGS (6)
  1. NORVIR [Suspect]
     Indication: HIV INFECTION
  2. PREDNISONE [Suspect]
     Indication: DRUG USE FOR UNKNOWN INDICATION
  3. CHEMO [Concomitant]
     Indication: DRUG USE FOR UNKNOWN INDICATION
  4. REYATAZ [Concomitant]
     Indication: DRUG USE FOR UNKNOWN INDICATION
  5. ISSENTRESS [Concomitant]
     Indication: DRUG USE FOR UNKNOWN INDICATION
  6. EMTRIVA [Concomitant]
     Indication: DRUG USE FOR UNKNOWN INDICATION

REACTIONS (2)
  - DIABETES MELLITUS [None]
  - TESTIS CANCER [None]
